FAERS Safety Report 13662512 (Version 2)
Quarter: 2017Q2

REPORT INFORMATION
  Report Type: Spontaneous
  Country: US (occurrence: US)
  Receive Date: 20170617
  Receipt Date: 20170619
  Transmission Date: 20170830
  Serious: No
  Sender: FDA-Public Use
  Company Number: US-009507513-1706USA005654

PATIENT
  Sex: Female

DRUGS (1)
  1. ASMANEX [Suspect]
     Active Substance: MOMETASONE FUROATE
     Indication: ASTHMA
     Dosage: 2 PUFFS, QD, STRENGTH REPORTED AS 200 MCG, 60 DOSE
     Route: 055
     Dates: start: 20170526, end: 2017

REACTIONS (3)
  - Tongue blistering [Unknown]
  - Oral pruritus [Unknown]
  - Oral discomfort [Unknown]

NARRATIVE: CASE EVENT DATE: 2017
